FAERS Safety Report 23845603 (Version 3)
Quarter: 2024Q2

REPORT INFORMATION
  Report Type: Spontaneous
  Country: JP (occurrence: JP)
  Receive Date: 20240511
  Receipt Date: 20240517
  Transmission Date: 20240715
  Serious: Yes (Death)
  Sender: FDA-Public Use
  Company Number: JP-Eisai-EC-2024-165554

PATIENT
  Age: 56 Year
  Sex: Female

DRUGS (2)
  1. LENVATINIB [Suspect]
     Active Substance: LENVATINIB
     Indication: Metastatic renal cell carcinoma
     Route: 048
     Dates: start: 2022
  2. PEMBROLIZUMAB [Suspect]
     Active Substance: PEMBROLIZUMAB
     Indication: Metastatic renal cell carcinoma
     Route: 042
     Dates: start: 2022

REACTIONS (5)
  - Intracranial tumour haemorrhage [Fatal]
  - Blood pressure increased [Unknown]
  - Erythema [Unknown]
  - Mouth haemorrhage [Unknown]
  - Platelet count decreased [Unknown]

NARRATIVE: CASE EVENT DATE: 20220101
